FAERS Safety Report 8513853-2 (Version None)
Quarter: 2012Q3

REPORT INFORMATION
  Report Type: 
  Country: None (occurrence: None)
  Receive Date: 20120705
  Receipt Date: 20120629
  Transmission Date: 20120928
  Serious: Yes (Death)
  Sender: FDA-Public Use
  Company Number: DSA_58228_2012

PATIENT
  Sex: Female

DRUGS (11)
  1. IBUPROFEN [Concomitant]
  2. CITALOPRAM HYDROBROMIDE [Concomitant]
  3. FEMCON FE [Concomitant]
  4. DIPYRIDAMOLE [Concomitant]
  5. OMEPRAZOLE [Concomitant]
  6. DIAZEPAN [Concomitant]
  7. CALCIUM/VITAMIN D /01204201/ [Concomitant]
  8. OXYBUTYNIN [Concomitant]
  9. XENAZINE [Suspect]
     Indication: PRODUCT USED FOR UNKNOWN INDICATION
     Dosage: (12.5 MG BID ORAL)
     Route: 048
  10. CALCITRIOL [Concomitant]
  11. BACLOFEN [Concomitant]

REACTIONS (1)
  - DEATH [None]
